FAERS Safety Report 12998305 (Version 1)
Quarter: 2016Q4

REPORT INFORMATION
  Report Type: Spontaneous
  Country: US (occurrence: US)
  Receive Date: 20161202
  Receipt Date: 20161202
  Transmission Date: 20170207
  Serious: Yes (Hospitalization)
  Sender: FDA-Public Use
  Company Number: None

PATIENT
  Age: 71 Year
  Sex: Male
  Weight: 91.2 kg

DRUGS (1)
  1. CISPLATIN. [Suspect]
     Active Substance: CISPLATIN
     Dates: end: 20070407

REACTIONS (9)
  - Malnutrition [None]
  - Skin graft [None]
  - Impaired healing [None]
  - Soft tissue necrosis [None]
  - Dysphagia [None]
  - Necrosis [None]
  - Skin ulcer [None]
  - Skin lesion [None]
  - Chondropathy [None]

NARRATIVE: CASE EVENT DATE: 20160830
